FAERS Safety Report 8444591-2 (Version None)
Quarter: 2012Q2

REPORT INFORMATION
  Report Type: 
  Country: None (occurrence: None)
  Receive Date: 20120618
  Receipt Date: 20120607
  Transmission Date: 20120825
  Serious: Yes (Hospitalization)
  Sender: FDA-Public Use
  Company Number: US-ABBOTT-12P-163-0934463-00

PATIENT
  Sex: Male
  Weight: 73.094 kg

DRUGS (4)
  1. HUMIRA [Suspect]
     Indication: RHEUMATOID ARTHRITIS
  2. UNKNOWN MEDICATION [Concomitant]
     Indication: HYPERTENSION
  3. UNKNOWN MEDICATION [Concomitant]
     Indication: BLOOD CHOLESTEROL INCREASED
  4. HUMIRA [Suspect]
     Indication: PSORIASIS
     Dates: start: 19980101

REACTIONS (3)
  - HYPERLIPIDAEMIA [None]
  - CEREBROVASCULAR ACCIDENT [None]
  - CAROTID ARTERY OCCLUSION [None]
